FAERS Safety Report 12455951 (Version 1)
Quarter: 2016Q2

REPORT INFORMATION
  Report Type: Spontaneous
  Country: MX (occurrence: MX)
  Receive Date: 20160610
  Receipt Date: 20160610
  Transmission Date: 20160815
  Serious: Yes (Hospitalization, Other)
  Sender: FDA-Public Use
  Company Number: MX-BAXALTA-2016BLT003899

PATIENT
  Age: 9 Year
  Sex: Male

DRUGS (2)
  1. KIOVIG [Suspect]
     Active Substance: HUMAN IMMUNOGLOBULIN G
     Indication: MYASTHENIA GRAVIS
     Dosage: UNK, FIRST INFUSION
     Route: 065
     Dates: start: 20151111
  2. KIOVIG [Suspect]
     Active Substance: HUMAN IMMUNOGLOBULIN G
     Indication: OFF LABEL USE
     Dosage: UNK, FOURTH INFUSION
     Route: 065
     Dates: start: 20160328

REACTIONS (5)
  - Pyrexia [Unknown]
  - Dyspnoea [Unknown]
  - Vomiting [Unknown]
  - Headache [Unknown]
  - Myasthenia gravis crisis [Unknown]

NARRATIVE: CASE EVENT DATE: 20160328
